FAERS Safety Report 9365406 (Version 1)
Quarter: 2013Q2

REPORT INFORMATION
  Report Type: Spontaneous
  Country: US (occurrence: None)
  Receive Date: 20130624
  Receipt Date: 20130624
  Transmission Date: 20140414
  Serious: Yes (Other)
  Sender: FDA-Public Use
  Company Number: None

PATIENT
  Age: 32 Year
  Sex: Female
  Weight: 129.6 kg

DRUGS (1)
  1. SUMATRIPTAN [Suspect]
     Indication: MIGRAINE
     Dosage: TPO DAILY/PRM MIGRAINE
     Route: 048
     Dates: start: 201212

REACTIONS (3)
  - Urticaria [None]
  - Product substitution issue [None]
  - Drug hypersensitivity [None]
